FAERS Safety Report 21217369 (Version 1)
Quarter: 2022Q3

REPORT INFORMATION
  Report Type: Spontaneous
  Country: US (occurrence: None)
  Receive Date: 20220816
  Receipt Date: 20220816
  Transmission Date: 20221027
  Serious: Yes (Other)
  Sender: FDA-Public Use
  Company Number: None

PATIENT
  Age: 24 Year
  Sex: Female
  Weight: 87.75 kg

DRUGS (3)
  1. .DELTA.8-TETRAHYDROCANNABINOL\HERBALS [Suspect]
     Active Substance: .DELTA.8-TETRAHYDROCANNABINOL\HERBALS
  2. ZOLOFT [Concomitant]
     Active Substance: SERTRALINE HYDROCHLORIDE
  3. PROPRANOLOL [Concomitant]

REACTIONS (7)
  - Panic attack [None]
  - Dizziness [None]
  - Nausea [None]
  - Hypoaesthesia [None]
  - Paraesthesia [None]
  - Tremor [None]
  - Vertigo [None]

NARRATIVE: CASE EVENT DATE: 20220815
